FAERS Safety Report 23181479 (Version 1)
Quarter: 2023Q4

REPORT INFORMATION
  Report Type: Spontaneous
  Country: US (occurrence: US)
  Receive Date: 20231114
  Receipt Date: 20231114
  Transmission Date: 20240110
  Serious: No
  Sender: FDA-Public Use
  Company Number: US-009507513-2311USA001878

PATIENT
  Age: 52 Year
  Sex: Female

DRUGS (7)
  1. KEYTRUDA [Suspect]
     Active Substance: PEMBROLIZUMAB
     Indication: Nasopharyngeal cancer
     Dosage: 200 MILLIGRAM, Q3W
  2. METFORMIN\SITAGLIPTIN [Concomitant]
     Active Substance: METFORMIN\SITAGLIPTIN
  3. AMITRIPTYLINE [Concomitant]
     Active Substance: AMITRIPTYLINE
  4. OXYCODONE AND ACETAMINOPHEN [Concomitant]
     Active Substance: ACETAMINOPHEN\OXYCODONE HYDROCHLORIDE
  5. NALOXONE HYDROCHLORIDE\OXYCODONE HYDROCHLORIDE [Concomitant]
     Active Substance: NALOXONE HYDROCHLORIDE\OXYCODONE HYDROCHLORIDE
  6. ACETAZOLAMIDE [Concomitant]
     Active Substance: ACETAZOLAMIDE
  7. LENVATINIB [Concomitant]
     Active Substance: LENVATINIB
     Indication: Metastatic malignant melanoma
     Dosage: UNK

REACTIONS (2)
  - Oral lichenoid reaction [Unknown]
  - Dry mouth [Unknown]
